FAERS Safety Report 22530293 (Version 1)
Quarter: 2023Q2

REPORT INFORMATION
  Report Type: Spontaneous
  Country: US (occurrence: None)
  Receive Date: 20230606
  Receipt Date: 20230606
  Transmission Date: 20230722
  Serious: Yes (Hospitalization, Other)
  Sender: FDA-Public Use
  Company Number: None

PATIENT
  Age: 71 Year
  Sex: Female
  Weight: 78.3 kg

DRUGS (9)
  1. YUPELRI [Suspect]
     Active Substance: REVEFENACIN
     Indication: Chronic obstructive pulmonary disease
     Dosage: 1 INHALATION DAILY RESPIRATORY (INHALATION)?
     Route: 055
     Dates: start: 20230518, end: 20230518
  2. SYNTHROID [Concomitant]
     Active Substance: LEVOTHYROXINE SODIUM
  3. PREDNISONE [Concomitant]
     Active Substance: PREDNISONE
  4. BREO ELLIPTA [Concomitant]
     Active Substance: FLUTICASONE FUROATE\VILANTEROL TRIFENATATE
  5. COMBIVENT PROTONIX [Concomitant]
  6. THIAMINE HYDROCHLORIDE [Concomitant]
     Active Substance: THIAMINE HYDROCHLORIDE
  7. VITAMIN B12 [Concomitant]
     Active Substance: CYANOCOBALAMIN
  8. VITAMIN D NOS [Concomitant]
     Active Substance: VITAMIN D NOS
  9. CLARITIN [Concomitant]
     Active Substance: LORATADINE

REACTIONS (5)
  - Pneumonia [None]
  - Acute respiratory failure [None]
  - Hypoxia [None]
  - Chronic obstructive pulmonary disease [None]
  - Oropharyngeal pain [None]

NARRATIVE: CASE EVENT DATE: 20230522
